FAERS Safety Report 12070933 (Version 1)
Quarter: 2016Q1

REPORT INFORMATION
  Report Type: Spontaneous
  Country: US (occurrence: US)
  Receive Date: 20160211
  Receipt Date: 20160211
  Transmission Date: 20160526
  Serious: No
  Sender: FDA-Public Use
  Company Number: US-BIOGEN-2012BI049007

PATIENT
  Sex: Male

DRUGS (1)
  1. AVONEX [Suspect]
     Active Substance: INTERFERON BETA-1A
     Indication: MULTIPLE SCLEROSIS
     Route: 030
     Dates: start: 20080807, end: 20150101

REACTIONS (14)
  - Vision blurred [Unknown]
  - Confusional state [Unknown]
  - Erectile dysfunction [Unknown]
  - Anxiety [Unknown]
  - Dysstasia [Unknown]
  - Amnesia [Unknown]
  - Speech disorder [Unknown]
  - Multiple sclerosis relapse [Unknown]
  - Gait disturbance [Unknown]
  - Urinary incontinence [Unknown]
  - Muscle spasms [Unknown]
  - Depression [Recovered/Resolved]
  - Blindness [Unknown]
  - Nerve injury [Unknown]
